FAERS Safety Report 5361825-1 (Version None)
Quarter: 2007Q2

REPORT INFORMATION
  Report Type: 
  Country: None (occurrence: None)
  Receive Date: 20070619
  Receipt Date: 20070607
  Transmission Date: 20071010
  Serious: Yes (Other)
  Sender: FDA-Public Use
  Company Number: US-ELI_LILLY_AND_COMPANY-US200706002395

PATIENT
  Sex: Female

DRUGS (4)
  1. CYMBALTA [Suspect]
     Dosage: 30 MG, DAILY (1/D)
     Route: 048
     Dates: start: 20070525, end: 20070526
  2. AVAPRO [Concomitant]
     Dosage: 150 UNK, UNKNOWN
  3. FORTAMET [Concomitant]
     Dosage: 1000 UNK, UNKNOWN
  4. ZYRTEC [Concomitant]
     Dosage: UNK, UNKNOWN

REACTIONS (4)
  - BALANCE DISORDER [None]
  - FALL [None]
  - FEELING ABNORMAL [None]
  - LOSS OF CONSCIOUSNESS [None]
